FAERS Safety Report 15833263 (Version 1)
Quarter: 2019Q1

REPORT INFORMATION
  Report Type: Spontaneous
  Country: GB (occurrence: GB)
  Receive Date: 20190116
  Receipt Date: 20190116
  Transmission Date: 20190417
  Serious: Yes (Other)
  Sender: FDA-Public Use
  Company Number: GB-PFIZER INC-2019020809

PATIENT
  Age: 45 Year
  Sex: Female
  Weight: 65.31 kg

DRUGS (3)
  1. NIZORAL [Suspect]
     Active Substance: KETOCONAZOLE
     Indication: FUNGAL INFECTION
     Dosage: 2 DF, 1X/DAY
     Route: 061
     Dates: start: 20181204, end: 20181210
  2. CETIRIZINE [Concomitant]
     Active Substance: CETIRIZINE HYDROCHLORIDE
  3. TRANEXAMIC ACID. [Suspect]
     Active Substance: TRANEXAMIC ACID
     Indication: ANGIOEDEMA
     Dosage: 3 G, 1X/DAY
     Route: 048
     Dates: start: 20181203, end: 20181212

REACTIONS (7)
  - Erythema [Recovering/Resolving]
  - Skin weeping [Recovering/Resolving]
  - Blister [Recovering/Resolving]
  - Scab [Unknown]
  - Dry skin [Unknown]
  - Skin infection [Recovering/Resolving]
  - Skin discomfort [Recovering/Resolving]

NARRATIVE: CASE EVENT DATE: 20181209
